FAERS Safety Report 7608252-1 (Version None)
Quarter: 2011Q3

REPORT INFORMATION
  Report Type: 
  Country: None (occurrence: None)
  Receive Date: 20110714
  Receipt Date: 20110706
  Transmission Date: 20111222
  Serious: No
  Sender: FDA-Public Use
  Company Number: FR-NOVOPROD-330677

PATIENT
  Age: 48 Year
  Sex: Male
  Weight: 99 kg

DRUGS (5)
  1. ATACAND [Concomitant]
     Dosage: 16 MG, QD
     Route: 048
     Dates: start: 20060101
  2. VICTOZA [Suspect]
     Indication: TYPE 2 DIABETES MELLITUS
     Dosage: 0.6 MG, QD
     Route: 058
     Dates: start: 20110601, end: 20110607
  3. VICTOZA [Suspect]
     Dosage: 1.2 MG, UNK
     Route: 058
     Dates: start: 20110607, end: 20110609
  4. VICTOZA [Suspect]
     Dosage: 0.6 MG, UNK
     Route: 058
     Dates: start: 20110610, end: 20110617
  5. ATORVASTATIN CALCIUM [Concomitant]
     Dosage: 10 MG, QD
     Route: 048
     Dates: start: 20010101

REACTIONS (1)
  - PANCREATITIS ACUTE [None]
